FAERS Safety Report 23288214 (Version 1)
Quarter: 2023Q4

REPORT INFORMATION
  Report Type: Spontaneous
  Country: US (occurrence: US)
  Receive Date: 20231212
  Receipt Date: 20231212
  Transmission Date: 20240110
  Serious: No
  Sender: FDA-Public Use
  Company Number: US-AMGEN-USASP2023220053

PATIENT
  Sex: Female

DRUGS (1)
  1. AIMOVIG [Suspect]
     Active Substance: ERENUMAB-AOOE
     Indication: Product used for unknown indication
     Dosage: 140 MILLIGRAM, QMO
     Route: 065

REACTIONS (8)
  - Injection site irritation [Unknown]
  - Injection site pruritus [Unknown]
  - Injection site mass [Unknown]
  - Injection site warmth [Unknown]
  - Injection site inflammation [Unknown]
  - Feeling hot [Unknown]
  - Dyspnoea [Unknown]
  - Dizziness [Unknown]
